FAERS Safety Report 22068071 (Version 1)
Quarter: 2023Q1

REPORT INFORMATION
  Report Type: Report from Study
  Country: MX (occurrence: MX)
  Receive Date: 20230307
  Receipt Date: 20230307
  Transmission Date: 20230418
  Serious: Yes (Death)
  Sender: FDA-Public Use
  Company Number: MX-002147023-NVSC2023MX051672

PATIENT
  Sex: Female
  Weight: 47 kg

DRUGS (2)
  1. EXFORGE HCT [Suspect]
     Active Substance: AMLODIPINE BESYLATE\HYDROCHLOROTHIAZIDE\VALSARTAN
     Indication: Hypertension
     Dosage: 1 DOSAGE FORM, QD (10/320/25 MG)
     Route: 048
     Dates: start: 202210, end: 20230123
  2. ERYTHROPOIETIN [Concomitant]
     Active Substance: ERYTHROPOIETIN
     Indication: Renal failure
     Dosage: 4000 IU, BIW (APPLIED 2 WEEKLY INJECTIONS) (INJECTABLE SOLUTION)
     Route: 058
     Dates: start: 202207

REACTIONS (1)
  - Pneumonia [Fatal]
